FAERS Safety Report 4795822-1 (Version None)
Quarter: 2005Q4

REPORT INFORMATION
  Report Type: 
  Country: None (occurrence: None)
  Receive Date: 20051007
  Receipt Date: 20050927
  Transmission Date: 20060501
  Serious: Yes (Other)
  Sender: FDA-Public Use
  Company Number: 2005134608

PATIENT
  Age: 16 Year
  Sex: Male

DRUGS (1)
  1. DRAMAMINE [Suspect]
     Dosage: 24 TABS ONCE; ORAL
     Route: 048

REACTIONS (2)
  - EUPHORIC MOOD [None]
  - OVERDOSE [None]
